FAERS Safety Report 7826970-7 (Version None)
Quarter: 2011Q4

REPORT INFORMATION
  Report Type: 
  Country: None (occurrence: None)
  Receive Date: 20111018
  Receipt Date: 20111010
  Transmission Date: 20120403
  Serious: Yes (Hospitalization)
  Sender: FDA-Public Use
  Company Number: 1000022589

PATIENT
  Age: 84 Year
  Sex: Male
  Weight: 58 kg

DRUGS (8)
  1. MUCOSTA (REBAMIPIDE) (REBAMIPIDE) [Concomitant]
  2. MEMANTINE [Suspect]
     Indication: DEMENTIA ALZHEIMER'S TYPE
     Dosage: 5 MG (5 MG,1 IN 1 D),ORAL
     Route: 048
     Dates: start: 20110623, end: 20110630
  3. VERAPAMIL HYDROCHLORIDE [Concomitant]
  4. ARICEPT OD (DONEPEZIL HYDROCHLORIDE) (DONEPEZIL HYDROCHLORIDE) [Concomitant]
  5. PLETAAL OD (CILOSTAZOL) (CILOSTAZOL) [Concomitant]
  6. WARFARIN SODIUM [Concomitant]
  7. PURSENNID (SENNA ALEXANDRINA LEAF) (SENNA ALEXANDRINA LEAF) [Concomitant]
  8. MEMANTINE [Suspect]
     Indication: DEMENTIA ALZHEIMER'S TYPE
     Dosage: 10 MG (10 MG,1 IN 1 D),ORAL
     Route: 048
     Dates: start: 20110701, end: 20110708

REACTIONS (3)
  - SEDATION [None]
  - HYPERSOMNIA [None]
  - ASTHENIA [None]
